FAERS Safety Report 12202611 (Version 1)
Quarter: 2016Q1

REPORT INFORMATION
  Report Type: Spontaneous
  Country: US (occurrence: US)
  Receive Date: 20160322
  Receipt Date: 20160322
  Transmission Date: 20160526
  Serious: Yes (Other)
  Sender: FDA-Public Use
  Company Number: US-B.I. PHARMACEUTICALS,INC./RIDGEFIELD-2016-BI-16761BP

PATIENT
  Age: 90 Year
  Sex: Male
  Weight: 67 kg

DRUGS (1)
  1. PRAXBIND [Suspect]
     Active Substance: IDARUCIZUMAB
     Indication: SPINAL OPERATION
     Dosage: DOSE PER APPLICATION: 2.5 G/50 ML;
     Route: 042
     Dates: start: 20160316, end: 20160316

REACTIONS (1)
  - Extravasation [Not Recovered/Not Resolved]

NARRATIVE: CASE EVENT DATE: 20160316
